FAERS Safety Report 7596235-X (Version None)
Quarter: 2011Q3

REPORT INFORMATION
  Report Type: 
  Country: None (occurrence: None)
  Receive Date: 20110707
  Receipt Date: 20110629
  Transmission Date: 20111222
  Serious: Yes (Hospitalization, Disabling)
  Sender: FDA-Public Use
  Company Number: US-US-EMD SERONO, INC.-7065761

PATIENT
  Sex: Male
  Weight: 35 kg

DRUGS (6)
  1. SAIZEN [Suspect]
     Dates: start: 20110407
  2. SYNTHROID [Concomitant]
     Indication: HYPOTHYROIDISM
  3. CORTEF [Concomitant]
     Indication: ADRENAL INSUFFICIENCY
     Dosage: 7.5 MG IN THE MORNING AND 5 MG IN THE EVENING
  4. SAIZEN [Suspect]
     Indication: HYPOPITUITARISM
     Dates: start: 20110104, end: 20110321
  5. DDAVP [Concomitant]
     Indication: DIABETES INSIPIDUS
     Dosage: 0.3-0.2-0.3 MG
     Route: 048
  6. DELATESTRYL [Concomitant]
     Indication: GONADOTROPHIN DEFICIENCY

REACTIONS (11)
  - HEMIANOPIA [None]
  - HEARING IMPAIRED [None]
  - DIZZINESS [None]
  - HEADACHE [None]
  - WEIGHT INCREASED [None]
  - BLINDNESS [None]
  - ANXIETY [None]
  - DEPRESSION [None]
  - VISION BLURRED [None]
  - MOOD SWINGS [None]
  - GROWTH ACCELERATED [None]
